FAERS Safety Report 9008679 (Version 2)
Quarter: 2014Q1

REPORT INFORMATION
  Report Type: Spontaneous
  Country: FR (occurrence: FR)
  Receive Date: 20130111
  Receipt Date: 20140102
  Transmission Date: 20141002
  Serious: Yes (Hospitalization, Other)
  Sender: FDA-Public Use
  Company Number: FR-PFIZER INC-2013006141

PATIENT
  Age: 37 Year
  Sex: Female

DRUGS (1)
  1. TRINORDIOL [Suspect]
     Indication: CONTRACEPTION
     Dosage: 1 DF, 1XDAY, CYCLIC
     Route: 048

REACTIONS (2)
  - Phlebitis [Recovered/Resolved]
  - Deep vein thrombosis [Unknown]
